FAERS Safety Report 8444065 (Version 4)
Quarter: 2013Q1

REPORT INFORMATION
  Report Type: Report from Study
  Country: JP (occurrence: JP)
  Receive Date: 20120306
  Receipt Date: 20130205
  Transmission Date: 20140127
  Serious: Yes (Other)
  Sender: FDA-Public Use
  Company Number: JP-VERTEX PHARMACEUTICALS INC.-AE-2012-003086

PATIENT
  Age: 61 Year
  Sex: Female

DRUGS (26)
  1. VX-950 (TELAPREVIR) [Suspect]
     Indication: HEPATITIS C
     Dosage: 2250 MG, QD
     Route: 048
     Dates: start: 20120107, end: 20120129
  2. VX-950 (TELAPREVIR) [Suspect]
     Dosage: 1500 MG, QD
     Route: 048
     Dates: start: 20120130, end: 20120325
  3. PEGINTERFERON ALFA-2B [Suspect]
     Indication: HEPATITIS C
     Dosage: 1.5 ?G/KG, QW
     Route: 058
     Dates: start: 20120107, end: 20120206
  4. PEGINTERFERON ALFA-2B [Suspect]
     Dosage: 1.2?G/KG, QW
     Route: 058
     Dates: start: 20120213, end: 20120312
  5. PEGINTERFERON ALFA-2B [Suspect]
     Dosage: 1 ?G/KG, QW
     Route: 058
     Dates: start: 20120319, end: 20120319
  6. PEGINTERFERON ALFA-2B [Suspect]
     Dosage: 0.8 ?G/KG, QW
     Route: 058
     Dates: start: 20120326, end: 20120409
  7. PEGINTERFERON ALFA-2B [Suspect]
     Dosage: 1.2?G/KG, QW
     Route: 058
     Dates: start: 20120416, end: 20120416
  8. PEGINTERFERON ALFA-2B [Suspect]
     Dosage: 1.5 ?G/KG, QW
     Route: 058
     Dates: start: 20120424, end: 20120618
  9. REBETOL [Suspect]
     Indication: HEPATITIS C
     Dosage: 600 MG, QD
     Route: 048
     Dates: start: 20120107, end: 20120129
  10. REBETOL [Suspect]
     Dosage: 200 MG, QD
     Route: 048
     Dates: start: 20120130, end: 20120212
  11. REBETOL [Suspect]
     Dosage: 400 MG, QD
     Route: 048
     Dates: start: 20120213
  12. REBETOL [Suspect]
     Dosage: 600 MG, QD
     Route: 048
     Dates: end: 20120311
  13. REBETOL [Suspect]
     Dosage: 200 MG, QD
     Route: 048
     Dates: start: 20120312, end: 20120318
  14. REBETOL [Suspect]
     Dosage: 200 MG, QD
     Route: 048
     Dates: start: 20120430, end: 20120520
  15. REBETOL [Suspect]
     Dosage: 400 MG, QD
     Route: 048
     Dates: start: 20120521, end: 20120527
  16. REBETOL [Suspect]
     Dosage: 600 MG, QD
     Route: 048
     Dates: start: 20120528, end: 20120603
  17. REBETOL [Suspect]
     Dosage: 400 MG, QD
     Route: 048
     Dates: start: 20120604, end: 20120610
  18. REBETOL [Suspect]
     Dosage: 600 MG, QD
     Route: 048
     Dates: start: 20120611, end: 20120618
  19. SLOW-K [Concomitant]
     Dosage: 2400 MG, QD
     Route: 048
  20. LIVALO [Concomitant]
     Dosage: 2 MG, QD
     Route: 048
     Dates: end: 20120113
  21. EPADEL [Concomitant]
     Dosage: 1800 MG, QD
     Route: 048
  22. FEROTYM [Concomitant]
     Dosage: 100 MG, QD
     Route: 048
  23. CLARITIN [Concomitant]
     Dosage: 10 MG, QD
     Route: 048
  24. EPADEL-S [Concomitant]
     Dosage: 1800 MG, QD
     Route: 048
  25. DOGMATYL [Concomitant]
     Dosage: 100 MG, QD
     Route: 048
  26. CLARITIN REDITABS [Concomitant]
     Dosage: 10 MG, QD
     Route: 048

REACTIONS (6)
  - Renal disorder [Not Recovered/Not Resolved]
  - Hyperuricaemia [Recovered/Resolved]
  - Anaemia [Not Recovered/Not Resolved]
  - Anaemia [Not Recovered/Not Resolved]
  - Platelet count decreased [Not Recovered/Not Resolved]
  - Platelet count decreased [Not Recovered/Not Resolved]
